FAERS Safety Report 6010551-4 (Version None)
Quarter: 2008Q4

REPORT INFORMATION
  Report Type: 
  Country: None (occurrence: None)
  Receive Date: 20081217
  Receipt Date: 20081217
  Transmission Date: 20090506
  Serious: Yes (Life-Threatening, Hospitalization)
  Sender: FDA-Public Use
  Company Number: None

PATIENT
  Age: 57 Year
  Sex: Female
  Weight: 57.1532 kg

DRUGS (1)
  1. FENTANYL-100 [Suspect]
     Indication: INTERVERTEBRAL DISC DEGENERATION
     Dosage: 100MG PATCH EVERY 3 DAYS NOW CAN NOT FIND ANYONE TO DETOX ME
     Dates: start: 20040101

REACTIONS (4)
  - APPARENT DEATH [None]
  - DRUG HYPERSENSITIVITY [None]
  - FALL [None]
  - RESPIRATORY ARREST [None]
